FAERS Safety Report 11588411 (Version 1)
Quarter: 2015Q4

REPORT INFORMATION
  Report Type: Spontaneous
  Country: IT (occurrence: IT)
  Receive Date: 20151002
  Receipt Date: 20151002
  Transmission Date: 20160304
  Serious: Yes (Other)
  Sender: FDA-Public Use
  Company Number: IT-ASTRAZENECA-2015SE93312

PATIENT
  Age: 38 Year
  Sex: Female

DRUGS (11)
  1. MIRTAZAPINE. [Suspect]
     Active Substance: MIRTAZAPINE
     Indication: BORDERLINE PERSONALITY DISORDER
  2. FLURAZEPAM [Suspect]
     Active Substance: FLURAZEPAM\FLURAZEPAM HYDROCHLORIDE
     Indication: INSOMNIA
     Dosage: GRADUALLY SUSPENDED BETWEEN WEEKS 26 AND 30 OF GESTATION
  3. LORAZEPAM. [Suspect]
     Active Substance: LORAZEPAM
  4. NICOTINE. [Suspect]
     Active Substance: NICOTINE
  5. FLURAZEPAM [Suspect]
     Active Substance: FLURAZEPAM\FLURAZEPAM HYDROCHLORIDE
     Indication: INSOMNIA
  6. QUETIAPINE [Suspect]
     Active Substance: QUETIAPINE
     Indication: BORDERLINE PERSONALITY DISORDER
     Route: 048
  7. QUETIAPINE [Suspect]
     Active Substance: QUETIAPINE
     Indication: BORDERLINE PERSONALITY DISORDER
     Dosage: REDUCED TO 300 MG DAILY AT THE BEGINNING OF THE EIGHTH MONTH OF PREGNANCY
     Route: 048
  8. QUETIAPINE [Suspect]
     Active Substance: QUETIAPINE
     Indication: BORDERLINE PERSONALITY DISORDER
     Route: 048
  9. LORAZEPAM. [Suspect]
     Active Substance: LORAZEPAM
     Dosage: REDUCED TO 1 MG DAILY AT THE BEGINNING OF THE EIGHTH MONTH OF PREGNANCY
  10. TRAZODONE [Suspect]
     Active Substance: TRAZODONE HYDROCHLORIDE
     Indication: INSOMNIA
  11. TRAZODONE [Suspect]
     Active Substance: TRAZODONE HYDROCHLORIDE
     Indication: INSOMNIA
     Dosage: GRADUALLY SUSPENDED BETWEEN WEEKS 26 AND 30 OF GESTATION

REACTIONS (4)
  - Off label use [Unknown]
  - Product use issue [Unknown]
  - Exposure during pregnancy [Unknown]
  - Prolonged pregnancy [Recovered/Resolved]
